FAERS Safety Report 6908615-3 (Version None)
Quarter: 2010Q3

REPORT INFORMATION
  Report Type: 
  Country: None (occurrence: None)
  Receive Date: 20100805
  Receipt Date: 20100727
  Transmission Date: 20110219
  Serious: Yes (Death, Other)
  Sender: FDA-Public Use
  Company Number: US-PFIZER INC-2005107325

PATIENT
  Sex: Male
  Weight: 88 kg

DRUGS (6)
  1. NEURONTIN [Suspect]
     Indication: BIPOLAR DISORDER
     Dosage: UNK
     Route: 065
     Dates: start: 20010917
  2. NEURONTIN [Suspect]
     Indication: DEPRESSION
  3. CLONAZEPAM [Concomitant]
     Dosage: UNK
     Route: 065
     Dates: start: 20011213
  4. CELEBREX [Concomitant]
     Dosage: UNK
     Route: 065
     Dates: start: 20020726
  5. METHYLPREDNISOLONE [Concomitant]
     Dosage: UNK
     Route: 065
     Dates: start: 20020726
  6. FLUOXETINE [Concomitant]
     Dosage: UNK
     Route: 065
     Dates: start: 20020613

REACTIONS (3)
  - ASPHYXIA [None]
  - COMPLETED SUICIDE [None]
  - DRUG INEFFECTIVE [None]
